FAERS Safety Report 17859555 (Version 3)
Quarter: 2020Q3

REPORT INFORMATION
  Report Type: Report from Study
  Country: FR (occurrence: FR)
  Receive Date: 20200604
  Receipt Date: 20200818
  Transmission Date: 20201103
  Serious: Yes (Death, Hospitalization, Other)
  Sender: FDA-Public Use
  Company Number: FR-AGIOS-2004FR01845

PATIENT

DRUGS (7)
  1. IVABRADINE [Concomitant]
     Active Substance: IVABRADINE
     Indication: CORONARY ARTERY DISEASE
  2. TIBSOVO [Suspect]
     Active Substance: IVOSIDENIB
     Indication: ACUTE MYELOID LEUKAEMIA
     Dosage: 250 MILLIGRAM, 2 TABLETS (500 MG) DAILY
     Route: 048
     Dates: start: 20200129, end: 20200224
  3. BISOPROLOL [Concomitant]
     Active Substance: BISOPROLOL
     Indication: CORONARY ARTERY DISEASE
  4. ESIDREX [Concomitant]
     Active Substance: HYDROCHLOROTHIAZIDE
     Indication: BLOOD PRESSURE INCREASED
  5. FEBUXOSTAT. [Concomitant]
     Active Substance: FEBUXOSTAT
     Indication: HYPERURICAEMIA
  6. RILMENIDINE [Concomitant]
     Active Substance: RILMENIDINE
     Indication: BLOOD PRESSURE INCREASED
     Dosage: UNK
  7. IRBESARTAN. [Concomitant]
     Active Substance: IRBESARTAN
     Indication: BLOOD PRESSURE INCREASED

REACTIONS (6)
  - Fall [Unknown]
  - Haemorrhage intracranial [Fatal]
  - Confusional state [Fatal]
  - Pyrexia [Fatal]
  - Coma [Unknown]
  - Craniocerebral injury [Fatal]

NARRATIVE: CASE EVENT DATE: 20200224
